FAERS Safety Report 10640541 (Version 1)
Quarter: 2014Q4

REPORT INFORMATION
  Report Type: Spontaneous
  Country: BR (occurrence: None)
  Receive Date: 20141205
  Receipt Date: 20141205
  Transmission Date: 20150529
  Serious: Yes (Other)
  Sender: FDA-Public Use
  Company Number: BR-ZYDUS-005704

PATIENT
  Age: 70 Year
  Sex: Male

DRUGS (4)
  1. CLOPIDOGREL [Suspect]
     Active Substance: CLOPIDOGREL BISULFATE
     Route: 048
  2. ATENOLOL. [Suspect]
     Active Substance: ATENOLOL
     Route: 048
  3. ATACAND HCT [Suspect]
     Active Substance: CANDESARTAN CILEXETIL\HYDROCHLOROTHIAZIDE
     Route: 048
     Dates: end: 20140910
  4. ROSUVASTATINE [Suspect]
     Active Substance: ROSUVASTATIN
     Route: 048

REACTIONS (6)
  - Chronic kidney disease [None]
  - Blood pressure inadequately controlled [None]
  - Tooth abscess [None]
  - Aortic aneurysm [None]
  - Off label use [None]
  - Tooth socket haemorrhage [None]

NARRATIVE: CASE EVENT DATE: 2004
